FAERS Safety Report 10160007 (Version 1)
Quarter: 2014Q2

REPORT INFORMATION
  Report Type: Spontaneous
  Country: US (occurrence: None)
  Receive Date: 20140506
  Receipt Date: 20140506
  Transmission Date: 20141212
  Serious: Yes (Hospitalization)
  Sender: FDA-Public Use
  Company Number: IPC201404-000202

PATIENT
  Age: 62 Year
  Sex: Female

DRUGS (1)
  1. METOPROLOL TARTRATE (METOPROLOL TARTRATE) (METOPROLOL TARTRATE) [Suspect]

REACTIONS (2)
  - Swelling face [None]
  - Lip swelling [None]
